FAERS Safety Report 18623471 (Version 1)
Quarter: 2020Q4

REPORT INFORMATION
  Report Type: Spontaneous
  Country: US (occurrence: US)
  Receive Date: 20201216
  Receipt Date: 20201216
  Transmission Date: 20210114
  Serious: Yes (Hospitalization)
  Sender: FDA-Public Use
  Company Number: None

PATIENT
  Age: 74 Year
  Sex: Male
  Weight: 55.7 kg

DRUGS (22)
  1. DOCUSATE [Concomitant]
     Active Substance: DOCUSATE
  2. ACETAMINOPHEN. [Concomitant]
     Active Substance: ACETAMINOPHEN
  3. ALLOPURINOL. [Concomitant]
     Active Substance: ALLOPURINOL
  4. ASPIRIN. [Concomitant]
     Active Substance: ASPIRIN
  5. GABAPENTIN. [Concomitant]
     Active Substance: GABAPENTIN
  6. BAMLANIVIMAB. [Suspect]
     Active Substance: BAMLANIVIMAB
     Indication: COVID-19
     Dosage: ?          OTHER FREQUENCY:ONCE;?
     Route: 041
  7. FOLIC ACID. [Concomitant]
     Active Substance: FOLIC ACID
  8. METOPROLOL TARTRATE. [Concomitant]
     Active Substance: METOPROLOL TARTRATE
  9. OXYCODONE-ACETAMINOPHEN [Concomitant]
     Active Substance: ACETAMINOPHEN\OXYCODONE HYDROCHLORIDE
  10. POLYETHYLENE GLYCOL [Concomitant]
     Active Substance: POLYETHYLENE GLYCOLS
  11. TAMSULOSIN [Concomitant]
     Active Substance: TAMSULOSIN
  12. FUROSEMIDE. [Concomitant]
     Active Substance: FUROSEMIDE
  13. IPRATROPIUM-ALBUTEROL [Concomitant]
     Active Substance: ALBUTEROL\IPRATROPIUM
  14. TRAZODONE [Concomitant]
     Active Substance: TRAZODONE HYDROCHLORIDE
  15. BENZONATATE. [Concomitant]
     Active Substance: BENZONATATE
  16. CLOPIDOGREL [Concomitant]
     Active Substance: CLOPIDOGREL BISULFATE
  17. GUAFENESIN [Concomitant]
     Active Substance: GUAIFENESIN
  18. ICOSAPENT ETHYL [Concomitant]
     Active Substance: ICOSAPENT ETHYL
  19. ATORVASTATIN [Concomitant]
     Active Substance: ATORVASTATIN
  20. CHOLECALCIFEROL [Concomitant]
     Active Substance: CHOLECALCIFEROL
  21. COLCHICINE. [Concomitant]
     Active Substance: COLCHICINE
  22. MELATONIN [Concomitant]
     Active Substance: MELATONIN

REACTIONS (8)
  - Pyrexia [None]
  - Respiratory rate increased [None]
  - Hypertension [None]
  - Dyspnoea [None]
  - Heart rate increased [None]
  - COVID-19 [None]
  - Pneumonia [None]
  - Oxygen saturation decreased [None]

NARRATIVE: CASE EVENT DATE: 20201211
